FAERS Safety Report 12859699 (Version 3)
Quarter: 2016Q4

REPORT INFORMATION
  Report Type: Spontaneous
  Country: US (occurrence: US)
  Receive Date: 20161018
  Receipt Date: 20161202
  Transmission Date: 20170207
  Serious: Yes (Hospitalization, Other)
  Sender: FDA-Public Use
  Company Number: US-BAUSCH-BL-2016-025234

PATIENT
  Sex: Male

DRUGS (4)
  1. ASPIRIN. [Suspect]
     Active Substance: ASPIRIN
     Indication: HEADACHE
     Dosage: 3 TO 4 TABLETS
     Route: 048
     Dates: start: 201602, end: 201611
  2. XIFAXAN [Suspect]
     Active Substance: RIFAXIMIN
     Route: 048
     Dates: start: 20160809
  3. XIFAXAN [Suspect]
     Active Substance: RIFAXIMIN
     Indication: HEPATIC CIRRHOSIS
     Route: 048
     Dates: start: 201602
  4. ASPIRIN. [Suspect]
     Active Substance: ASPIRIN
     Dosage: 3 TO 4 TABLETS
     Route: 048
     Dates: start: 20160809, end: 201611

REACTIONS (5)
  - Abdominal pain upper [Recovered/Resolved]
  - Gastric haemorrhage [Unknown]
  - Hypoacusis [Unknown]
  - Headache [Not Recovered/Not Resolved]
  - Hospitalisation [Unknown]

NARRATIVE: CASE EVENT DATE: 2016
